FAERS Safety Report 4476812-5 (Version None)
Quarter: 2004Q4

REPORT INFORMATION
  Report Type: 
  Country: None (occurrence: None)
  Receive Date: 20041012
  Receipt Date: 20041005
  Transmission Date: 20050328
  Serious: Yes (Hospitalization)
  Sender: FDA-Public Use
  Company Number: TPA2004A01061

PATIENT
  Sex: Male

DRUGS (2)
  1. ACTOS [Suspect]
     Indication: DIABETES MELLITUS NON-INSULIN-DEPENDENT
     Dosage: 30 MG, ,PER ORAL
     Route: 048
  2. NARCOTICS (ALL OTHER THERAPEUTIC PRODUCTS) [Suspect]
     Indication: BACK PAIN

REACTIONS (4)
  - ANGIOPLASTY [None]
  - CARDIAC FAILURE CONGESTIVE [None]
  - CONDITION AGGRAVATED [None]
  - STENT PLACEMENT [None]
